FAERS Safety Report 15134036 (Version 4)
Quarter: 2019Q1

REPORT INFORMATION
  Report Type: Spontaneous
  Country: DE (occurrence: DE)
  Receive Date: 20180712
  Receipt Date: 20190125
  Transmission Date: 20190417
  Serious: Yes (Death)
  Sender: FDA-Public Use
  Company Number: PHHY2000DE004093

PATIENT
  Age: 60 Year
  Sex: Female
  Weight: 40 kg

DRUGS (88)
  1. ACENOCOUMAROL [Concomitant]
     Active Substance: ACENOCOUMAROL
     Indication: PRODUCT USED FOR UNKNOWN INDICATION
     Route: 065
  2. KALIUM-DURILES [Concomitant]
     Active Substance: POTASSIUM
     Indication: HYPOKALAEMIA
     Dosage: 2 DF, UNK  (1 TOTAL)
     Route: 048
     Dates: start: 19980814, end: 19980814
  3. SOLU-DECORTIN [Concomitant]
     Active Substance: PREDNISOLONE SODIUM SUCCINATE
     Indication: ERYTHEMA
     Route: 042
     Dates: start: 19980826, end: 19980826
  4. LOPIRIN COR [Suspect]
     Active Substance: CAPTOPRIL
     Indication: HYPERTONIA
     Dosage: 1 DF, QD
     Route: 048
  5. ISOKET [Suspect]
     Active Substance: ISOSORBIDE DINITRATE
     Indication: HYPERTENSION
     Dosage: 60 MG, QD
     Route: 048
     Dates: start: 19980818
  6. BENZYLPENICILLIN [Suspect]
     Active Substance: PENICILLIN G
     Dosage: 10 MIU, QD
     Route: 042
     Dates: start: 19980821, end: 19980826
  7. GLUCOSE [Concomitant]
     Active Substance: DEXTROSE
     Indication: FLUID REPLACEMENT
     Dosage: 500 ML, QD
     Route: 042
     Dates: start: 19980824, end: 19980824
  8. STEROFUNDIN [Concomitant]
     Active Substance: CALCIUM CHLORIDE\MAGNESIUM CHLORIDE\POTASSIUM CHLORIDE\SODIUM ACETATE\SODIUM CHLORIDE
     Indication: FLUID REPLACEMENT
     Dosage: 1000 ML
     Route: 042
     Dates: start: 19980821, end: 19980828
  9. STEROFUNDIN [Concomitant]
     Active Substance: CALCIUM CHLORIDE\MAGNESIUM CHLORIDE\POTASSIUM CHLORIDE\SODIUM ACETATE\SODIUM CHLORIDE
     Dosage: THE PATIENT RECEIVED 4500 ML (APPROX.) OF STEROFUNDIN OVER THIS PERIOD
     Route: 042
     Dates: start: 19980821, end: 19980828
  10. CARVEDILOL. [Suspect]
     Active Substance: CARVEDILOL
     Indication: HYPERTENSION
     Dosage: 13 MG, QD
     Route: 048
  11. BENZYLPENICILLIN [Suspect]
     Active Substance: PENICILLIN G
     Indication: PNEUMONIA
     Dosage: 20 MIU, QD
     Route: 042
     Dates: start: 19980821, end: 19980826
  12. VANCOMYCIN [Suspect]
     Active Substance: VANCOMYCIN
     Route: 042
  13. TAVEGIL [Concomitant]
     Active Substance: CLEMASTINE FUMARATE
     Indication: ERYTHEMA
     Dosage: 1 DF, QD
     Route: 042
     Dates: start: 19980826, end: 19980826
  14. TAGAMET [Concomitant]
     Active Substance: CIMETIDINE
     Indication: PROPHYLAXIS AGAINST GASTROINTESTINAL ULCER
     Dosage: 1 AMPULE (DAILY DOSE)
     Route: 042
     Dates: start: 19980826, end: 19980826
  15. ZIENAM [Concomitant]
     Active Substance: CILASTATIN SODIUM\IMIPENEM
     Dosage: 500 MG, QD
     Route: 042
  16. CARBIMAZOL [Concomitant]
     Active Substance: CARBIMAZOLE
     Indication: HYPERTHYROIDISM
     Dosage: 20 MG, QD
     Route: 048
  17. POTASSIUM CARBONATE [Concomitant]
     Active Substance: POTASSIUM CARBONATE
     Dosage: 1 DF, UNK
     Route: 048
     Dates: start: 19980824, end: 19980825
  18. ERYFER [Concomitant]
     Indication: ANAEMIA
     Dosage: 1 DF, QD
     Route: 048
     Dates: end: 19980807
  19. KALINOR [Concomitant]
     Indication: BLOOD POTASSIUM DECREASED
     Dosage: 1 DF, QD
     Route: 048
     Dates: start: 19980824, end: 19980825
  20. KALIUMCHLORID [Concomitant]
     Active Substance: POTASSIUM CHLORIDE
     Route: 048
     Dates: start: 19980818, end: 19980820
  21. VANCOMYCIN [Suspect]
     Active Substance: VANCOMYCIN
     Indication: PNEUMONIA
     Dosage: 500 MG, UNK
     Route: 042
     Dates: start: 19980821
  22. POTASSIUM CHLORIDE. [Concomitant]
     Active Substance: POTASSIUM CHLORIDE
     Dosage: 6 MMOL, UNK
     Route: 042
     Dates: start: 19980828, end: 19980828
  23. CARBIMAZOL [Concomitant]
     Active Substance: CARBIMAZOLE
     Dosage: 10 MG
     Route: 048
  24. POTASSIUM CARBONATE [Concomitant]
     Active Substance: POTASSIUM CARBONATE
     Indication: BLOOD POTASSIUM DECREASED
     Dosage: 1 U/L, QD
     Route: 048
     Dates: start: 19980821, end: 19980821
  25. BEPANTHEN [Concomitant]
     Indication: CIRCULATORY COLLAPSE
     Dosage: 4 (DAILY DOSE)
     Route: 042
     Dates: start: 19980808, end: 19980808
  26. KALINOR [Concomitant]
     Indication: HYPOKALAEMIA
     Dosage: 1 DF, UNK (1 TOTAL)
     Route: 048
     Dates: start: 19980821, end: 19980821
  27. DEPOT-INSULIN [Concomitant]
     Active Substance: INSULIN NOS
     Indication: DIABETES MELLITUS
     Route: 058
  28. INSULIN ZINC SUSPENSION [Concomitant]
     Dosage: 1 UNK, UNK
     Route: 058
  29. ASPIRIN. [Suspect]
     Active Substance: ASPIRIN
     Indication: THROMBOSIS PROPHYLAXIS
     Dosage: 100 MG, UNK
     Route: 048
  30. ASPIRIN. [Suspect]
     Active Substance: ASPIRIN
     Indication: THROMBOSIS PROPHYLAXIS
     Dosage: 100 MG, QD
     Route: 048
  31. XANEF (ENALAPRIL MALEATE) [Suspect]
     Active Substance: ENALAPRIL MALEATE
     Dosage: 5 MG, UNK
     Route: 048
  32. FRAGMIN P [Suspect]
     Active Substance: DALTEPARIN SODIUM
     Dosage: 1 DF
     Route: 058
  33. PRES [Suspect]
     Active Substance: ENALAPRIL MALEATE
     Indication: HYPERTONIA
     Dosage: 10 MG, QD
     Route: 048
     Dates: start: 19980811, end: 19980817
  34. IRENAT [Concomitant]
     Active Substance: SODIUM PERCHLORATE
     Indication: HYPERTHYROIDISM
     Dosage: 60 GTT, QD
     Route: 048
     Dates: end: 19980828
  35. POTASSIUM CHLORIDE. [Concomitant]
     Active Substance: POTASSIUM CHLORIDE
     Indication: BLOOD POTASSIUM DECREASED
     Dosage: 2 ?G/L, QD
     Route: 048
     Dates: start: 19980814, end: 19980814
  36. POTASSIUM CHLORIDE. [Concomitant]
     Active Substance: POTASSIUM CHLORIDE
     Dosage: 2 DF, QD
     Route: 048
     Dates: start: 19980814, end: 19980814
  37. KALIUMKLORID [Concomitant]
     Dosage: 1 DF
     Route: 048
     Dates: start: 19980818, end: 19980820
  38. PARACETAMOL [Concomitant]
     Active Substance: ACETAMINOPHEN
     Indication: ANALGESIC THERAPY
     Dosage: 500 MG, QD
     Route: 048
     Dates: start: 19980826
  39. CARBIMAZOL [Concomitant]
     Active Substance: CARBIMAZOLE
     Dosage: BID/TID
     Route: 048
  40. CARBIMAZOL [Concomitant]
     Active Substance: CARBIMAZOLE
     Dosage: BID/TID
     Route: 048
  41. KALIUMCHLORID [Concomitant]
     Active Substance: POTASSIUM CHLORIDE
     Indication: HYPOKALAEMIA
     Route: 042
     Dates: start: 19980828, end: 19980828
  42. ENALAPRIL MALEATE. [Suspect]
     Active Substance: ENALAPRIL MALEATE
     Dosage: 5 MG, QD
     Route: 048
     Dates: start: 19980811, end: 19980817
  43. CARVEDILOL. [Suspect]
     Active Substance: CARVEDILOL
     Indication: HYPERTONIA
     Dosage: 6.25 MG, QD
     Route: 048
  44. GLIBENCLAMIDE [Suspect]
     Active Substance: GLYBURIDE
     Indication: PRODUCT USED FOR UNKNOWN INDICATION
     Dosage: 1 DF, UNK
     Route: 048
     Dates: start: 19980820, end: 19980821
  45. LOPIRIN COR [Suspect]
     Active Substance: CAPTOPRIL
     Indication: HYPERTENSION
     Dosage: 2 DF, QD
     Route: 048
     Dates: end: 19980806
  46. XANEF (ENALAPRIL MALEATE) [Suspect]
     Active Substance: ENALAPRIL MALEATE
     Dosage: 20 MG, QD
     Route: 048
     Dates: start: 19980811, end: 19980817
  47. FRAGMIN P [Suspect]
     Active Substance: DALTEPARIN SODIUM
     Indication: THROMBOSIS PROPHYLAXIS
     Dosage: 1 DF, QD
     Route: 058
     Dates: start: 19980818
  48. PASPERTIN (METOCLOPRAMIDE/POLIDOCANOL) [Suspect]
     Active Substance: METOCLOPRAMIDE\POLIDOCANOL
     Dosage: 60 GTT, QD
     Route: 042
     Dates: start: 19980820, end: 19980820
  49. SORTIS [Concomitant]
     Active Substance: ATORVASTATIN
     Dosage: 10 MG
     Route: 048
  50. SOLU-DECORTIN-H [Concomitant]
     Active Substance: PREDNISOLONE SODIUM SUCCINATE
     Indication: ERYTHEMA
     Dosage: 100 MG, QD
     Route: 042
     Dates: start: 19980826, end: 19980826
  51. KALIUMKLORID [Concomitant]
     Dosage: 3 ?G/L, QD
     Route: 048
     Dates: start: 19980818, end: 19980820
  52. ZOCOR [Concomitant]
     Active Substance: SIMVASTATIN
     Indication: HYPERTONIA
  53. DOPMIN [Concomitant]
     Indication: CIRCULATORY COLLAPSE
     Dosage: UNK
     Route: 042
     Dates: start: 19980808, end: 19980808
  54. AMINOQUINURIDE HYDROCHLORIDE [Concomitant]
     Indication: DIABETES MELLITUS
     Dosage: 8 IU, QD
     Route: 058
  55. POTASSIUM CITRATE. [Concomitant]
     Active Substance: POTASSIUM CITRATE
     Indication: BLOOD POTASSIUM DECREASED
     Dosage: 1 DF, UNK
     Route: 048
     Dates: start: 19980821, end: 19980821
  56. NOVALGIN (METAMIZOLE SODIUM) [Suspect]
     Active Substance: METAMIZOLE SODIUM
     Indication: PAIN
     Dosage: 20 GTT, QD
     Route: 048
     Dates: start: 19980811, end: 19980811
  57. XANEF (ENALAPRIL MALEATE) [Suspect]
     Active Substance: ENALAPRIL MALEATE
     Dosage: 10 MG, QD
     Route: 048
     Dates: start: 19980818
  58. DIGIMERCK [Suspect]
     Active Substance: DIGITOXIN
     Indication: CARDIAC FAILURE
     Dosage: 1 DF, QD
     Route: 048
     Dates: start: 19980812
  59. HEPARIN-CALCIUM [Suspect]
     Active Substance: HEPARIN CALCIUM
     Indication: THROMBOSIS PROPHYLAXIS
     Dosage: 15000 IU, QD
     Route: 058
     Dates: start: 19980811, end: 19980818
  60. HEPARIN-CALCIUM [Suspect]
     Active Substance: HEPARIN CALCIUM
     Dosage: 7500 IU, QD
     Route: 058
     Dates: start: 19980811, end: 19980818
  61. PASPERTIN (METOCLOPRAMIDE/POLIDOCANOL) [Suspect]
     Active Substance: METOCLOPRAMIDE\POLIDOCANOL
     Dosage: 20 GTT, QD
     Route: 042
     Dates: start: 19980814, end: 19980818
  62. IRENAT [Concomitant]
     Active Substance: SODIUM PERCHLORATE
     Dosage: 20 GTT, QD
     Route: 048
  63. PARACETAMOL [Concomitant]
     Active Substance: ACETAMINOPHEN
     Dosage: UNK, QD
     Route: 048
  64. AMINO ACIDS NOS [Concomitant]
     Active Substance: AMINO ACIDS
     Indication: FLUID REPLACEMENT
     Dosage: UNK
     Route: 042
     Dates: start: 19980811, end: 19980817
  65. INSULIN ZINC SUSPENSION [Concomitant]
     Indication: DIABETES MELLITUS
     Dosage: UNK UNK, QD
     Route: 058
  66. LASIX [Suspect]
     Active Substance: FUROSEMIDE
     Indication: CARDIAC FAILURE
     Dosage: 1 DF, QD
     Route: 048
     Dates: end: 19980406
  67. XANEF (ENALAPRIL MALEATE) [Suspect]
     Active Substance: ENALAPRIL MALEATE
     Indication: HYPERTENSION
     Dosage: 10 MG, QD
     Route: 048
     Dates: start: 19980811, end: 19980817
  68. PASPERTIN (METOCLOPRAMIDE/POLIDOCANOL) [Suspect]
     Active Substance: METOCLOPRAMIDE\POLIDOCANOL
     Indication: NAUSEA
     Dosage: 60 GTT, QD
     Route: 042
     Dates: start: 19980808, end: 19980826
  69. PASPERTIN (METOCLOPRAMIDE/POLIDOCANOL) [Suspect]
     Active Substance: METOCLOPRAMIDE\POLIDOCANOL
     Dosage: 20 GTT, UNK
     Route: 048
  70. UNAT [Suspect]
     Active Substance: TORSEMIDE
     Indication: CARDIAC FAILURE
     Dosage: 40 MG, QD
     Route: 065
     Dates: start: 19980808
  71. ZIENAM [Concomitant]
     Active Substance: CILASTATIN SODIUM\IMIPENEM
     Indication: SEPSIS
     Dosage: 1500 MG, QD
     Route: 042
     Dates: start: 19980828
  72. POTASSIUM CHLORIDE. [Concomitant]
     Active Substance: POTASSIUM CHLORIDE
     Dosage: 3 DF, QD
     Route: 048
     Dates: start: 19980818, end: 19980820
  73. KALIUMKLORID [Concomitant]
     Indication: BLOOD POTASSIUM DECREASED
     Dosage: 6 MMOL, UNK
     Route: 048
     Dates: start: 19980818, end: 19980820
  74. ZOCOR [Concomitant]
     Active Substance: SIMVASTATIN
     Indication: HYPERTENSION
     Dosage: 20 MG, QD
     Route: 048
     Dates: start: 19980803, end: 19980818
  75. NOVODIGAL [Concomitant]
     Indication: CARDIAC FAILURE
     Dosage: 0.2 MG, QD
     Route: 048
     Dates: end: 19980812
  76. TUTOFUSIN [Concomitant]
     Indication: FLUID REPLACEMENT
     Dosage: 1000 UNK, UNK
     Route: 042
  77. ENALAPRIL MALEATE. [Suspect]
     Active Substance: ENALAPRIL MALEATE
     Indication: HYPERTENSION
     Dosage: 10 MG, QD
     Route: 048
     Dates: start: 19980811, end: 19980817
  78. CARVEDILOL. [Suspect]
     Active Substance: CARVEDILOL
     Dosage: 12.5 MG, UNK
     Route: 048
  79. DIGIMERCK [Suspect]
     Active Substance: DIGITOXIN
     Dosage: 1 DF
     Route: 048
  80. TAVEGIL [Concomitant]
     Active Substance: CLEMASTINE FUMARATE
     Dosage: UNIT DOSE=1 AMPULE DAILY DOSE=1 AMPULE
     Route: 042
     Dates: start: 19980826, end: 19980826
  81. SORTIS [Concomitant]
     Active Substance: ATORVASTATIN
     Indication: LIPIDS INCREASED
     Dosage: 10 MG, QD
     Route: 048
     Dates: start: 19980826
  82. POTASSIUM CHLORIDE. [Concomitant]
     Active Substance: POTASSIUM CHLORIDE
     Dosage: 3 ?G/L, QD
     Route: 048
     Dates: start: 19980818, end: 19980820
  83. ANTRA [Concomitant]
     Active Substance: OMEPRAZOLE
     Indication: PROPHYLAXIS AGAINST GASTROINTESTINAL ULCER
     Dosage: 20 MG, QD
     Route: 048
     Dates: end: 19980818
  84. KALIUMKLORID [Concomitant]
     Indication: HYPOKALAEMIA
     Dosage: 6 MMOL, UNK (1 HOUR)
     Route: 042
     Dates: start: 19980828, end: 19980828
  85. DEXPANTHENOL. [Concomitant]
     Active Substance: DEXPANTHENOL
     Indication: CIRCULATORY COLLAPSE
     Dosage: 4 DF, QD
     Route: 042
     Dates: start: 19980808, end: 19980808
  86. PARACETAMOL [Concomitant]
     Active Substance: ACETAMINOPHEN
     Route: 048
  87. DOPMIN [Concomitant]
     Dosage: AS PER BODY WEIGHT
     Route: 042
  88. ELECTROLYTES NOS [Concomitant]
     Active Substance: ELECTROLYTES NOS
     Indication: FLUID REPLACEMENT
     Dosage: 1000 ML, QD
     Route: 042
     Dates: start: 19980821, end: 19980828

REACTIONS (3)
  - Toxic epidermal necrolysis [Fatal]
  - Septic shock [Fatal]
  - Circulatory collapse [Fatal]

NARRATIVE: CASE EVENT DATE: 19980826
